FAERS Safety Report 16053843 (Version 2)
Quarter: 2019Q1

REPORT INFORMATION
  Report Type: Report from Study
  Country: PL (occurrence: PL)
  Receive Date: 20190308
  Receipt Date: 20190318
  Transmission Date: 20190418
  Serious: Yes (Other)
  Sender: FDA-Public Use
  Company Number: PL-PFIZER INC-2019097970

PATIENT

DRUGS (3)
  1. SERTRALINE HCL [Suspect]
     Active Substance: SERTRALINE HYDROCHLORIDE
     Dosage: UNK
  2. DULOXETINE. [Interacting]
     Active Substance: DULOXETINE
     Dosage: UNK
  3. RHODIOLA ROSEA [Interacting]
     Active Substance: HERBALS
     Dosage: UNK

REACTIONS (3)
  - Hepatotoxicity [Unknown]
  - Herbal interaction [Unknown]
  - Jaundice [Unknown]
